FAERS Safety Report 24836896 (Version 9)
Quarter: 2025Q4

REPORT INFORMATION
  Report Type: Spontaneous
  Country: AR (occurrence: AR)
  Receive Date: 20250113
  Receipt Date: 20251124
  Transmission Date: 20260117
  Serious: Yes (Hospitalization, Other)
  Sender: SANDOZ
  Company Number: AR-002147023-NVSC2023AR207744

PATIENT
  Age: 60 Year
  Sex: Female

DRUGS (7)
  1. FULVESTRANT [Suspect]
     Active Substance: FULVESTRANT
     Indication: Breast cancer metastatic
     Dosage: 500 MG, QMO
     Route: 042
  2. FULVESTRANT [Suspect]
     Active Substance: FULVESTRANT
     Indication: Breast cancer
     Dosage: 500 MG, QMO (500 MG (2X250 MG) AMPULE, QMO/EVERY  28 DAYS)
     Route: 030
     Dates: start: 20230721
  3. KISQALI [Suspect]
     Active Substance: RIBOCICLIB SUCCINATE
     Indication: Breast cancer metastatic
     Dosage: 600 MG, QD (3 TABLETS
     Route: 048
     Dates: start: 20230721
  4. ZOMETA [Suspect]
     Active Substance: ZOLEDRONIC ACID
     Indication: Breast cancer metastatic
     Dosage: 4 MG, QMO
     Route: 042
  5. ZOMETA [Suspect]
     Active Substance: ZOLEDRONIC ACID
     Indication: Breast cancer
     Dosage: 4 MG, QMO/ EVERY 28 DAYS, AMPULE
     Route: 030
     Dates: start: 20230721
  6. ZOMETA [Suspect]
     Active Substance: ZOLEDRONIC ACID
     Indication: Breast cancer metastatic
  7. MORPHINE [Concomitant]
     Active Substance: MORPHINE
     Indication: Product used for unknown indication
     Dosage: UNK
     Route: 065

REACTIONS (23)
  - Poisoning [Recovering/Resolving]
  - Bone disorder [Unknown]
  - Metastases to spine [Unknown]
  - Deafness [Unknown]
  - Vision blurred [Unknown]
  - Memory impairment [Unknown]
  - Feeling abnormal [Unknown]
  - Cerebral disorder [Unknown]
  - Neoplasm [Unknown]
  - Stress [Unknown]
  - Eye haemorrhage [Unknown]
  - Feeling cold [Unknown]
  - Decreased immune responsiveness [Recovered/Resolved]
  - Laboratory test abnormal [Unknown]
  - Bacterial infection [Unknown]
  - Nervousness [Unknown]
  - Pain [Unknown]
  - Bone pain [Unknown]
  - Headache [Unknown]
  - Arthralgia [Unknown]
  - Anaemia [Unknown]
  - Fatigue [Unknown]
  - Inappropriate schedule of product administration [Unknown]

NARRATIVE: CASE EVENT DATE: 20230907
